FAERS Safety Report 13046104 (Version 1)
Quarter: 2016Q4

REPORT INFORMATION
  Report Type: Spontaneous
  Country: BR (occurrence: BR)
  Receive Date: 20161220
  Receipt Date: 20161220
  Transmission Date: 20170207
  Serious: Yes (Hospitalization)
  Sender: FDA-Public Use
  Company Number: BR-PFIZER INC-2016571797

PATIENT
  Age: 74 Year
  Sex: Female
  Weight: 83 kg

DRUGS (3)
  1. LIPITOR [Suspect]
     Active Substance: ATORVASTATIN CALCIUM
     Indication: CATHETER PLACEMENT
  2. LIPITOR [Suspect]
     Active Substance: ATORVASTATIN CALCIUM
     Indication: ANGIOPLASTY
     Dosage: 40 MG, 1X/DAY
     Route: 048
     Dates: start: 201610, end: 201611
  3. BRILINTA [Concomitant]
     Active Substance: TICAGRELOR
     Indication: CARDIAC DISORDER
     Dosage: 2 TABLETS PER DAY
     Route: 048
     Dates: start: 20161013, end: 20161113

REACTIONS (1)
  - Infarction [Unknown]

NARRATIVE: CASE EVENT DATE: 20161010
